FAERS Safety Report 8402575-4 (Version None)
Quarter: 2012Q2

REPORT INFORMATION
  Report Type: 
  Country: None (occurrence: None)
  Receive Date: 20120323
  Receipt Date: 20110222
  Transmission Date: 20120825
  Serious: Yes (Other)
  Sender: FDA-Public Use
  Company Number: 163-21880-10100377

PATIENT
  Age: 53 Year
  Sex: Female

DRUGS (9)
  1. FUROSEMIDE [Concomitant]
  2. GABAPENTIN [Concomitant]
  3. ALLOPURINOL [Concomitant]
  4. POTASSIUM CHLORIDE [Concomitant]
  5. WARFARIN SODIUM [Concomitant]
  6. LEXAPRO [Concomitant]
  7. REVLIMID [Suspect]
     Indication: MULTIPLE MYELOMA
     Dosage: 25 MG, DAILY FOR 21 DAYS AND 7 DAYS OFF, PO
     Route: 048
     Dates: start: 20061201
  8. DEXAMETHASONE [Concomitant]
  9. FAMOTIDINE [Concomitant]

REACTIONS (6)
  - HYPOKALAEMIA [None]
  - FALL [None]
  - INFECTION [None]
  - CERVICAL VERTEBRAL FRACTURE [None]
  - DEEP VEIN THROMBOSIS [None]
  - THROMBOCYTOPENIA [None]
